FAERS Safety Report 7465423-5 (Version None)
Quarter: 2011Q2

REPORT INFORMATION
  Report Type: 
  Country: None (occurrence: None)
  Receive Date: 20110509
  Receipt Date: 20110427
  Transmission Date: 20111010
  Serious: Yes (Disabling)
  Sender: FDA-Public Use
  Company Number: DE-GENZYME-POMP-1001436

PATIENT

DRUGS (13)
  1. IBUPROFEN [Concomitant]
     Indication: PAIN
     Dosage: 600 MG, PRN
     Route: 065
  2. MYOZYME [Suspect]
     Dosage: 19 MG/KG, Q2W
     Route: 042
     Dates: start: 20070201, end: 20110309
  3. MYOZYME [Suspect]
     Dosage: 19 MG/KG, Q2W
     Route: 042
     Dates: start: 20070201, end: 20110309
  4. MYOZYME [Suspect]
     Indication: GLYCOGEN STORAGE DISEASE TYPE II
     Dosage: 19 MG/KG, Q2W
     Route: 042
     Dates: start: 20070201, end: 20110309
  5. MYOZYME [Suspect]
     Dosage: 19 MG/KG, Q2W
     Route: 042
     Dates: start: 20070201, end: 20110309
  6. MYOZYME [Suspect]
     Dosage: 19 MG/KG, Q2W
     Route: 042
     Dates: start: 20070201, end: 20110309
  7. MYOZYME [Suspect]
     Dosage: 19 MG/KG, Q2W
     Route: 042
     Dates: start: 20070201, end: 20110309
  8. MYOZYME [Suspect]
     Dosage: 19 MG/KG, Q2W
     Route: 042
     Dates: start: 20070201, end: 20110309
  9. MYOZYME [Suspect]
     Dosage: 19 MG/KG, Q2W
     Route: 042
     Dates: start: 20070201, end: 20110309
  10. MYOZYME [Suspect]
     Dosage: 19 MG/KG, Q2W
     Route: 042
     Dates: start: 20070201, end: 20110309
  11. MYOZYME [Suspect]
     Dosage: 19 MG/KG, Q2W
     Route: 042
     Dates: start: 20070201, end: 20110309
  12. ATACAND [Concomitant]
     Indication: HYPERTENSION
     Dosage: 8 MG, UNK
     Route: 065
  13. LOPERAMIDE [Concomitant]
     Indication: DIARRHOEA
     Dosage: UNK UNK, UNK
     Route: 065

REACTIONS (3)
  - MOBILITY DECREASED [None]
  - DISEASE PROGRESSION [None]
  - PAIN [None]
